FAERS Safety Report 20191955 (Version 71)
Quarter: 2025Q1

REPORT INFORMATION
  Report Type: Spontaneous
  Country: CA (occurrence: CA)
  Receive Date: 20211216
  Receipt Date: 20250108
  Transmission Date: 20250409
  Serious: Yes (Life-Threatening, Hospitalization, Other)
  Sender: CELLTRION
  Company Number: CA-CELLTRION INC.-2021CA017213

PATIENT

DRUGS (28)
  1. INFLECTRA [Suspect]
     Active Substance: INFLIXIMAB-DYYB
     Indication: Crohn^s disease
     Route: 042
     Dates: start: 20191220
  2. INFLECTRA [Suspect]
     Active Substance: INFLIXIMAB-DYYB
     Route: 042
     Dates: start: 20200225, end: 20200225
  3. INFLECTRA [Suspect]
     Active Substance: INFLIXIMAB-DYYB
     Route: 042
     Dates: start: 20200512, end: 20210505
  4. INFLECTRA [Suspect]
     Active Substance: INFLIXIMAB-DYYB
     Route: 042
     Dates: start: 20211106
  5. INFLECTRA [Suspect]
     Active Substance: INFLIXIMAB-DYYB
     Route: 042
     Dates: start: 20211224
  6. INFLECTRA [Suspect]
     Active Substance: INFLIXIMAB-DYYB
     Route: 042
     Dates: start: 20220816
  7. INFLECTRA [Suspect]
     Active Substance: INFLIXIMAB-DYYB
     Route: 042
     Dates: start: 20221126
  8. INFLECTRA [Suspect]
     Active Substance: INFLIXIMAB-DYYB
     Route: 042
     Dates: start: 20230113
  9. INFLECTRA [Suspect]
     Active Substance: INFLIXIMAB-DYYB
     Route: 042
     Dates: start: 20230210
  10. INFLECTRA [Suspect]
     Active Substance: INFLIXIMAB-DYYB
     Route: 042
     Dates: start: 20230406
  11. INFLECTRA [Suspect]
     Active Substance: INFLIXIMAB-DYYB
     Route: 042
     Dates: start: 20230722
  12. INFLECTRA [Suspect]
     Active Substance: INFLIXIMAB-DYYB
     Route: 042
     Dates: start: 20230901
  13. INFLECTRA [Suspect]
     Active Substance: INFLIXIMAB-DYYB
     Route: 042
     Dates: start: 20231006
  14. INFLECTRA [Suspect]
     Active Substance: INFLIXIMAB-DYYB
     Route: 042
     Dates: start: 20231215
  15. INFLECTRA [Suspect]
     Active Substance: INFLIXIMAB-DYYB
     Route: 042
     Dates: start: 20231229
  16. INFLECTRA [Suspect]
     Active Substance: INFLIXIMAB-DYYB
     Route: 042
     Dates: start: 20240119
  17. INFLECTRA [Suspect]
     Active Substance: INFLIXIMAB-DYYB
     Route: 042
     Dates: start: 20240227
  18. INFLECTRA [Suspect]
     Active Substance: INFLIXIMAB-DYYB
     Route: 042
     Dates: start: 20240521
  19. INFLECTRA [Suspect]
     Active Substance: INFLIXIMAB-DYYB
     Route: 042
     Dates: start: 20240710
  20. INFLECTRA [Suspect]
     Active Substance: INFLIXIMAB-DYYB
     Route: 042
     Dates: start: 20240913
  21. INFLECTRA [Suspect]
     Active Substance: INFLIXIMAB-DYYB
     Route: 042
     Dates: start: 20241107
  22. CIPROFLOXACIN [Concomitant]
     Active Substance: CIPROFLOXACIN
  23. FLAGYL [Concomitant]
     Active Substance: METRONIDAZOLE\METRONIDAZOLE HYDROCHLORIDE
  24. HYDROMORPHONE HYDROCHLORIDE [Concomitant]
     Active Substance: HYDROMORPHONE HYDROCHLORIDE
     Indication: Analgesic therapy
     Dates: start: 20200211
  25. PANTOPRAZOLE SODIUM [Concomitant]
     Active Substance: PANTOPRAZOLE SODIUM
  26. PANTOPRAZOLE SODIUM [Concomitant]
     Active Substance: PANTOPRAZOLE SODIUM
  27. PREDNISONE [Concomitant]
     Active Substance: PREDNISONE
  28. PREDNISONE [Concomitant]
     Active Substance: PREDNISONE

REACTIONS (84)
  - Suicidal ideation [Recovering/Resolving]
  - Abdominal strangulated hernia [Not Recovered/Not Resolved]
  - Strangulated hernia [Recovering/Resolving]
  - Aspiration [Unknown]
  - Stoma closure [Unknown]
  - Malaise [Not Recovered/Not Resolved]
  - Constipation [Recovering/Resolving]
  - Clostridium difficile infection [Unknown]
  - Influenza [Unknown]
  - Limb injury [Not Recovered/Not Resolved]
  - Impaired healing [Not Recovered/Not Resolved]
  - Wound infection [Unknown]
  - Abdominal hernia [Recovering/Resolving]
  - Condition aggravated [Not Recovered/Not Resolved]
  - Pulmonary congestion [Unknown]
  - Faecaloma [Unknown]
  - Aphthous ulcer [Recovered/Resolved]
  - Erythema nodosum [Recovered/Resolved]
  - Pyoderma gangrenosum [Recovered/Resolved]
  - Anal fissure [Recovered/Resolved]
  - Fistula [Not Recovered/Not Resolved]
  - Intestinal obstruction [Not Recovered/Not Resolved]
  - Pneumonia [Unknown]
  - Neuropathy peripheral [Unknown]
  - Osteomyelitis [Unknown]
  - Rectal abscess [Unknown]
  - Cellulitis [Unknown]
  - Infected fistula [Not Recovered/Not Resolved]
  - COVID-19 [Unknown]
  - Abscess [Recovered/Resolved]
  - Infection [Unknown]
  - Pain [Not Recovered/Not Resolved]
  - Arthralgia [Recovered/Resolved]
  - Foot fracture [Unknown]
  - Fall [Unknown]
  - Sepsis [Unknown]
  - Therapeutic response shortened [Not Recovered/Not Resolved]
  - Illness [Recovering/Resolving]
  - Nasopharyngitis [Unknown]
  - Dyspnoea [Not Recovered/Not Resolved]
  - Dehydration [Unknown]
  - Nausea [Unknown]
  - Labyrinthitis [Unknown]
  - Cough [Unknown]
  - Bronchitis [Unknown]
  - Chest pain [Unknown]
  - Feeling abnormal [Unknown]
  - Brain fog [Unknown]
  - Pyrexia [Not Recovered/Not Resolved]
  - Blood glucose fluctuation [Unknown]
  - Ear pain [Not Recovered/Not Resolved]
  - Oropharyngeal pain [Not Recovered/Not Resolved]
  - Myalgia [Unknown]
  - Peripheral swelling [Unknown]
  - Joint range of motion decreased [Unknown]
  - Sinusitis [Not Recovered/Not Resolved]
  - Malaise [Not Recovered/Not Resolved]
  - Stoma complication [Recovering/Resolving]
  - Stoma site pain [Recovering/Resolving]
  - Constipation [Not Recovered/Not Resolved]
  - Prolapse [Unknown]
  - Muscle spasms [Not Recovered/Not Resolved]
  - Abdominal discomfort [Not Recovered/Not Resolved]
  - Erythema [Unknown]
  - Pain in extremity [Unknown]
  - Confusional state [Unknown]
  - Hypersensitivity [Unknown]
  - Coccydynia [Not Recovered/Not Resolved]
  - Intra-abdominal fluid collection [Unknown]
  - Postoperative wound infection [Recovering/Resolving]
  - Fatigue [Unknown]
  - Mouth ulceration [Not Recovered/Not Resolved]
  - Ear infection [Unknown]
  - Fistula discharge [Unknown]
  - Contusion [Unknown]
  - Vomiting [Unknown]
  - Pain [Unknown]
  - Fluid retention [Unknown]
  - Inflammation [Unknown]
  - Abscess [Unknown]
  - Off label use [Unknown]
  - Off label use [Unknown]
  - Intentional product use issue [Unknown]
  - Product dose omission issue [Unknown]

NARRATIVE: CASE EVENT DATE: 20200225
